FAERS Safety Report 20118712 (Version 5)
Quarter: 2022Q1

REPORT INFORMATION
  Report Type: Report from Study
  Country: GB (occurrence: GB)
  Receive Date: 20211126
  Receipt Date: 20220308
  Transmission Date: 20220424
  Serious: Yes (Hospitalization, Other)
  Sender: FDA-Public Use
  Company Number: GB-CELLTRION INC.-2021GB015997

PATIENT

DRUGS (81)
  1. RITUXIMAB [Suspect]
     Active Substance: RITUXIMAB
     Indication: Diffuse large B-cell lymphoma stage IV
     Dosage: 375MG/M2, 1X/DAY (DOSE FORM: 230)
     Route: 042
     Dates: start: 20210721, end: 20210722
  2. RITUXIMAB [Suspect]
     Active Substance: RITUXIMAB
     Dosage: 1Q3W, ON 21-JUL-2021 AND 11-8-2021; REGIMEN #1; DOSE FORM: 16; ADDITIONAL INFO: R-CHOP
     Route: 042
     Dates: start: 20210721, end: 20210811
  3. RITUXIMAB [Suspect]
     Active Substance: RITUXIMAB
     Dosage: SINGLE, EVERY 3 WEEKS
     Route: 042
     Dates: start: 20210721, end: 20210811
  4. RITUXIMAB [Suspect]
     Active Substance: RITUXIMAB
     Dosage: 375MG/M2, 1X/DAY (DOSE FORM: 230)
     Route: 042
     Dates: start: 20210721, end: 20210721
  5. RITUXIMAB [Suspect]
     Active Substance: RITUXIMAB
     Dosage: 375MG/M2, 1X/DAY (DOSE FORM: 230)
     Route: 042
     Dates: start: 20210811, end: 20210811
  6. RITUXIMAB [Suspect]
     Active Substance: RITUXIMAB
     Dosage: 375 MG/M2; 1Q3W; REGIMEN #1; PHARMACEUTICAL DOSAGE FORM: 16; ADDITIONAL INFO: R-CHOP
     Route: 042
     Dates: start: 20210721, end: 20210722
  7. RITUXIMAB [Suspect]
     Active Substance: RITUXIMAB
     Dosage: 375 MG/M2; 1Q3W; REGIMEN #2; PHARMACEUTICAL DOSAGE FORM: 16; ADDITIONAL INFO: R-CHOP
     Route: 042
     Dates: start: 20210811, end: 20210811
  8. CYCLOPHOSPHAMIDE [Suspect]
     Active Substance: CYCLOPHOSPHAMIDE
     Indication: Diffuse large B-cell lymphoma stage IV
     Dosage: 750 MG/M2, 1X/DAY (PHARMACEUTICAL DOSE FORM: 201)
     Route: 042
     Dates: start: 20210721, end: 20210721
  9. CYCLOPHOSPHAMIDE [Suspect]
     Active Substance: CYCLOPHOSPHAMIDE
     Dosage: 1Q3W, ON 21-JUL-2021 AND 11-8-2021; REGIMEN #1; DOSE FORM: 201; ADDITIONAL INFO: R-CHOP
     Route: 042
     Dates: start: 20210721, end: 20210811
  10. CYCLOPHOSPHAMIDE [Suspect]
     Active Substance: CYCLOPHOSPHAMIDE
     Dosage: 750 MG/M2, 1X/DAY (PHARMACEUTICAL DOSE FORM: 201)
     Route: 042
     Dates: start: 20210811, end: 20210811
  11. CYCLOPHOSPHAMIDE [Suspect]
     Active Substance: CYCLOPHOSPHAMIDE
     Dosage: SINGLE (PHARMACEUTICAL DOSE FORM: 201)
     Route: 042
     Dates: start: 20210721, end: 20210811
  12. CYCLOPHOSPHAMIDE [Suspect]
     Active Substance: CYCLOPHOSPHAMIDE
     Dosage: 1Q3W; REGIMEN #1; PHARMACEUTICAL DOSAGE FORM: 201; ADDITIONAL INFO: R-CHOP
     Route: 042
     Dates: start: 20210721, end: 20210721
  13. CYCLOPHOSPHAMIDE [Suspect]
     Active Substance: CYCLOPHOSPHAMIDE
     Dosage: 1Q3W; REGIMEN #2; PHARMACEUTICAL DOSAGE FORM: 201; ADDITIONAL INFO: R-CHOP
     Route: 042
     Dates: start: 20210811, end: 20210811
  14. DOXORUBICIN HYDROCHLORIDE [Suspect]
     Active Substance: DOXORUBICIN HYDROCHLORIDE
     Indication: Diffuse large B-cell lymphoma stage IV
     Dosage: 50MG/M2, 1X/DAY (PHARMACEUTICAL DOSE FORM: 231)
     Route: 042
     Dates: start: 20210721, end: 20210721
  15. DOXORUBICIN HYDROCHLORIDE [Suspect]
     Active Substance: DOXORUBICIN HYDROCHLORIDE
     Dosage: 50MG/M2, 1X/DAY (PHARMACEUTICAL DOSE FORM: 231)
     Route: 042
     Dates: start: 20210811, end: 20210811
  16. DOXORUBICIN HYDROCHLORIDE [Suspect]
     Active Substance: DOXORUBICIN HYDROCHLORIDE
     Dosage: 1Q3W, ON 21-JUL-2021 AND 11-8-2021; REGIMEN #1;
     Route: 042
     Dates: start: 20210721, end: 20210811
  17. DOXORUBICIN [Suspect]
     Active Substance: DOXORUBICIN
     Indication: Diffuse large B-cell lymphoma stage IV
     Dosage: EVERY 3 WEEKS; 1Q3W, ON 21-JUL-2021 AND 11-AUG-2021; REGIMEN #1; DOSE FORM: 230; ADDITIONAL INFO: R-
     Route: 042
     Dates: start: 20210721, end: 20210811
  18. DOXORUBICIN [Suspect]
     Active Substance: DOXORUBICIN
     Dosage: (PHARMACEUTICAL DOSE FORM: 230)
     Route: 042
     Dates: start: 20210721, end: 20210811
  19. DOXORUBICIN [Suspect]
     Active Substance: DOXORUBICIN
     Dosage: 50 MG/M2; 1Q3W; REGIMEN #2;PHARMACEUTICAL DOSAGE FORM: 230; ADDITIONAL INFO: R-CHOP
     Route: 042
     Dates: start: 20210811, end: 20210811
  20. DOXORUBICIN [Suspect]
     Active Substance: DOXORUBICIN
     Dosage: 50 MG/M2; 1Q3W; REGIMEN #1;PHARMACEUTICAL DOSAGE FORM: 230; ADDITIONAL INFO: R-CHOP
     Route: 042
     Dates: start: 20210721, end: 20210721
  21. EPCORITAMAB [Suspect]
     Active Substance: EPCORITAMAB
     Indication: Product used for unknown indication
     Dosage: 0.16 MG, 1X/DAY, PRIMING DOSE: 0.16 MG (PHARMACEUTICAL DOSE FORM: 15)
     Route: 058
     Dates: start: 20210722, end: 20210722
  22. EPCORITAMAB [Suspect]
     Active Substance: EPCORITAMAB
     Dosage: 0.16 MG, 1X/DAY, PRIMING DOSE: 0.16 MG (PHARMACEUTICAL DOSE FORM: 15)
     Route: 058
     Dates: start: 20210811, end: 20210811
  23. EPCORITAMAB [Suspect]
     Active Substance: EPCORITAMAB
     Dosage: 0.16 MG, 1X/DAY, RE-PRIMING (RPD1): 0.16 MG (PHARMACEUTICAL DOSE FORM: 15)
     Route: 058
     Dates: start: 20210811, end: 20210811
  24. EPCORITAMAB [Suspect]
     Active Substance: EPCORITAMAB
     Dosage: 0.16 MG; PRIMING DOSE ON 22-JUL-2021 AND RE-PRIMING DOSE ON 11-AUG-2021; PHARMACEUTICAL DOSAGE FORM:
     Route: 058
     Dates: start: 20210722, end: 20210811
  25. EPCORITAMAB [Suspect]
     Active Substance: EPCORITAMAB
     Indication: Diffuse large B-cell lymphoma stage IV
     Dosage: PRIMING DOSE: 0.16 MG, SINGLE (PHARMACEUTICAL DOSE FORM: 15)
     Route: 058
     Dates: start: 20210722, end: 20210811
  26. EPCORITAMAB [Suspect]
     Active Substance: EPCORITAMAB
     Dosage: PRIMING DOSE: 0.16 DOSE SINGLE
     Route: 058
     Dates: start: 20210722, end: 20210811
  27. EPCORITAMAB [Suspect]
     Active Substance: EPCORITAMAB
     Dosage: PRIMING DOSE: 0.16 MG, SINGLE (PHARMACEUTICAL DOSE FORM: 15)
     Route: 058
     Dates: start: 20210722, end: 20210811
  28. PREDNISONE [Suspect]
     Active Substance: PREDNISONE
     Indication: Diffuse large B-cell lymphoma stage IV
     Dosage: 100 MG TABLET. R-CHOP (DOSE FORM: 245)/QD, ; REGIMEN #1; DOSE FORM: 245; ADDITIONAL INFO: R-CHOP
     Route: 048
     Dates: start: 20210721, end: 20210725
  29. PREDNISONE [Suspect]
     Active Substance: PREDNISONE
     Indication: Immune disorder prophylaxis
     Dosage: 100 MILLIGRAM DAILY (PHARMACEUTICAL DOSE FORM: 245)
     Route: 048
     Dates: start: 20210721, end: 20210725
  30. PREDNISONE [Suspect]
     Active Substance: PREDNISONE
     Dosage: 100 MG TABLET. R-CHOP (DOSE FORM: 245)
     Route: 048
     Dates: start: 20210811, end: 20210815
  31. PREDNISONE [Suspect]
     Active Substance: PREDNISONE
     Dosage: 100 MILLIGRAM DAILY;/QD, ; REGIMEN #2; DOSE FORM: 245; ADDITIONAL INFO: R-CHOP
     Route: 048
     Dates: start: 20210811, end: 20210815
  32. PREDNISONE [Suspect]
     Active Substance: PREDNISONE
     Dosage: 100 MG TABLET. R-CHOP (DOSE FORM: 245)
     Route: 048
     Dates: start: 20210811, end: 20210815
  33. PREDNISONE [Suspect]
     Active Substance: PREDNISONE
     Dosage: 100 MG, QD; REGIMEN #1; ADDITIONAL INFO: R-CHOP; PHRAMCEUTICAL DOSAGE FORM: 245
     Route: 048
     Dates: start: 20210721, end: 20210725
  34. VINCRISTINE SULFATE [Suspect]
     Active Substance: VINCRISTINE SULFATE
     Indication: Diffuse large B-cell lymphoma stage IV
     Dosage: 1.4 MG/M2, 1X/DAY (PHARMACEUTICAL DOSE FORM: 231)
     Route: 042
     Dates: start: 20210721, end: 20210721
  35. VINCRISTINE SULFATE [Suspect]
     Active Substance: VINCRISTINE SULFATE
     Dosage: 1.4 MG/M2, 1X/DAY (PHARMACEUTICAL DOSE FORM: 231)
     Route: 042
     Dates: start: 20210811, end: 20210811
  36. VINCRISTINE [Suspect]
     Active Substance: VINCRISTINE
     Indication: Diffuse large B-cell lymphoma stage IV
     Dosage: 1Q3W, ON 21-JUL-2021 AND 11-8-2021REGIMEN #1; DOSE FORM: 231/SINGLE, EVERY 3 WEEKS
     Route: 042
     Dates: start: 20210721, end: 20210811
  37. VINCRISTINE [Suspect]
     Active Substance: VINCRISTINE
     Dosage: SINGLE (PHARMACEUTICAL DOSE FORM: 231)
     Route: 042
     Dates: start: 20210721, end: 20210811
  38. VINCRISTINE [Suspect]
     Active Substance: VINCRISTINE
     Dosage: 1.4 MG/M2, 1Q3W, REGIMEN #2; PHARMACEUTICAL DOSAGE FORM: 231; ADDITIONAL INFO: R-CHOP
     Route: 042
     Dates: start: 20210811, end: 20210811
  39. VINCRISTINE [Suspect]
     Active Substance: VINCRISTINE
     Dosage: 1.4 MG/M2, 1Q3W, REGIMEN #1; PHARMACEUTICAL DOSAGE FORM: 231; ADDITIONAL INFO: R-CHOP
     Route: 042
     Dates: start: 20210721, end: 20210721
  40. PREDNISOLONE [Suspect]
     Active Substance: PREDNISOLONE
     Indication: Diffuse large B-cell lymphoma
     Dosage: 100 MG, QD (PHARMACEUTICAL DOSAGE FORM: 245) (ADDITIONAL INFO: REGIMEN 1)
     Route: 048
     Dates: start: 20210721, end: 20210725
  41. PREDNISOLONE [Suspect]
     Active Substance: PREDNISOLONE
     Dosage: 100 MG, QD (PHARMACEUTICAL DOSAGE FORM: 245) (ADDITIONAL INFO: REGIMEN 1)
     Route: 048
     Dates: start: 20210811, end: 20210815
  42. PREDNISOLONE [Suspect]
     Active Substance: PREDNISOLONE
     Dosage: 100 MG, QD
     Route: 048
     Dates: start: 20210721, end: 20210725
  43. ACYCLOVIR [Concomitant]
     Active Substance: ACYCLOVIR
     Dosage: ONGOING; ;
     Dates: start: 20210721
  44. ACYCLOVIR [Concomitant]
     Active Substance: ACYCLOVIR
     Dosage: ON-GOING; ;
     Route: 065
     Dates: start: 20210723
  45. CHLORPHENIRAMINE MALEATE [Concomitant]
     Active Substance: CHLORPHENIRAMINE MALEATE
     Dosage: UNK
     Dates: start: 20210622, end: 20210811
  46. CHLORPHENIRAMINE MALEATE [Concomitant]
     Active Substance: CHLORPHENIRAMINE MALEATE
     Dosage: PRE-MEDICATION;
     Route: 042
     Dates: start: 20210722, end: 20210722
  47. CHLORPHENIRAMINE MALEATE [Concomitant]
     Active Substance: CHLORPHENIRAMINE MALEATE
     Dosage: 10 MG
     Route: 042
     Dates: start: 20210722
  48. CHLORPHENIRAMINE MALEATE [Concomitant]
     Active Substance: CHLORPHENIRAMINE MALEATE
     Dosage: 10 MG
     Route: 042
     Dates: start: 20210722, end: 20210811
  49. CHLORPHENIRAMINE MALEATE [Concomitant]
     Active Substance: CHLORPHENIRAMINE MALEATE
     Dosage: PRE-MEDICATION;
     Route: 042
     Dates: start: 20210811, end: 20210811
  50. CHLORPHENIRAMINE MALEATE [Concomitant]
     Active Substance: CHLORPHENIRAMINE MALEATE
     Dosage: 10 MG
     Route: 042
     Dates: start: 20210811
  51. COTRIMOXAZOLE [Concomitant]
     Active Substance: SULFAMETHOXAZOLE\TRIMETHOPRIM
     Dosage: UNK
     Route: 065
     Dates: start: 20210721
  52. COTRIMOXAZOLE [Concomitant]
     Active Substance: SULFAMETHOXAZOLE\TRIMETHOPRIM
     Dosage: ONGOING
     Dates: start: 20210721
  53. COTRIMOXAZOLE [Concomitant]
     Active Substance: SULFAMETHOXAZOLE\TRIMETHOPRIM
     Dosage: ON-GOING; ;
     Route: 065
     Dates: start: 20210723
  54. CODEINE [Concomitant]
     Active Substance: CODEINE
     Dosage: ONGOING; ;
     Route: 065
     Dates: start: 20210721
  55. CYCLIZINE [Concomitant]
     Active Substance: CYCLIZINE
     Dosage: UNK
     Dates: start: 20210721
  56. CYCLIZINE [Concomitant]
     Active Substance: CYCLIZINE
     Dosage: ONGOING; ;
     Dates: start: 20210824
  57. FLUCONAZOLE [Concomitant]
     Active Substance: FLUCONAZOLE
     Dosage: ONGOING; ;
     Route: 065
     Dates: start: 20210721
  58. FLUCONAZOLE [Concomitant]
     Active Substance: FLUCONAZOLE
     Dosage: ONGOING
     Dates: start: 20210723
  59. LANSOPRAZOLE [Concomitant]
     Active Substance: LANSOPRAZOLE
     Dosage: ONGOING; ;
     Route: 065
     Dates: start: 202106
  60. LANSOPRAZOLE [Concomitant]
     Active Substance: LANSOPRAZOLE
     Dosage: ONGOING
     Route: 065
     Dates: start: 20210723
  61. METOCLOPRAMIDE [Concomitant]
     Active Substance: METOCLOPRAMIDE
     Dosage: ONGOING
     Dates: start: 20210621
  62. METOCLOPRAMIDE [Concomitant]
     Active Substance: METOCLOPRAMIDE
     Dosage: ONGOING; ;
     Route: 065
     Dates: start: 20210721
  63. METOCLOPRAMIDE [Concomitant]
     Active Substance: METOCLOPRAMIDE
     Dosage: ONGOING
     Route: 065
     Dates: start: 20210723
  64. FILGRASTIM [Concomitant]
     Active Substance: FILGRASTIM
     Dosage: UNK
     Route: 065
     Dates: start: 20210812, end: 20210818
  65. FILGRASTIM [Concomitant]
     Active Substance: FILGRASTIM
     Dosage: UNK
     Route: 065
     Dates: start: 20210812, end: 20210818
  66. FILGRASTIM [Concomitant]
     Active Substance: FILGRASTIM
     Dosage: UNK
     Dates: start: 20210818
  67. ONDANSETRON [Concomitant]
     Active Substance: ONDANSETRON
     Dosage: UNK
     Dates: start: 20210721, end: 20210813
  68. ONDANSETRON [Concomitant]
     Active Substance: ONDANSETRON
     Dosage: UNK
     Dates: start: 20210721, end: 20210813
  69. ONDANSETRON [Concomitant]
     Active Substance: ONDANSETRON
     Dosage: UNK
     Dates: start: 20210813
  70. ACETAMINOPHEN [Concomitant]
     Active Substance: ACETAMINOPHEN
     Dosage: UNK
     Dates: start: 20210622, end: 20210811
  71. ACETAMINOPHEN [Concomitant]
     Active Substance: ACETAMINOPHEN
     Dosage: PRE-MEDICATION;
     Route: 048
     Dates: start: 20210722, end: 20210722
  72. ACETAMINOPHEN [Concomitant]
     Active Substance: ACETAMINOPHEN
     Dosage: 1 GRAM
     Route: 048
     Dates: start: 20210722, end: 20210811
  73. ACETAMINOPHEN [Concomitant]
     Active Substance: ACETAMINOPHEN
     Dosage: 1 GRAM
     Route: 048
     Dates: start: 20210811
  74. ACETAMINOPHEN [Concomitant]
     Active Substance: ACETAMINOPHEN
     Dosage: PRE-MEDICATION;
     Route: 048
     Dates: start: 20210811, end: 20210811
  75. PREDNISOLONE [Concomitant]
     Active Substance: PREDNISOLONE
     Dosage: 100 MG
     Dates: start: 20210721, end: 20210906
  76. PREDNISOLONE [Concomitant]
     Active Substance: PREDNISOLONE
     Dosage: 100 MG, 1X/DAY
     Route: 048
     Dates: start: 20210721, end: 20210725
  77. PREDNISOLONE [Concomitant]
     Active Substance: PREDNISOLONE
     Dosage: 100 MG, 1X/DAY
     Route: 048
     Dates: start: 20210811, end: 20210815
  78. RASBURICASE [Concomitant]
     Active Substance: RASBURICASE
     Dosage: UNK
     Dates: start: 20210721, end: 20210721
  79. RASBURICASE [Concomitant]
     Active Substance: RASBURICASE
     Dosage: UNK
     Dates: start: 20210721, end: 20210722
  80. SENNA [Concomitant]
     Active Substance: SENNA LEAF\SENNOSIDES\SENNOSIDES A AND B
     Dosage: ONGOING;
     Dates: start: 20210818
  81. DALTEPARIN [Concomitant]
     Active Substance: DALTEPARIN
     Dosage: UNK
     Dates: start: 20210721, end: 20210827

REACTIONS (3)
  - Disease recurrence [Recovered/Resolved]
  - Febrile neutropenia [Recovered/Resolved]
  - Febrile neutropenia [Recovered/Resolved]

NARRATIVE: CASE EVENT DATE: 20210727
